FAERS Safety Report 5454060-X (Version None)
Quarter: 2007Q3

REPORT INFORMATION
  Report Type: 
  Country: None (occurrence: None)
  Receive Date: 20070917
  Receipt Date: 20070904
  Transmission Date: 20080115
  Serious: Yes (Other)
  Sender: FDA-Public Use
  Company Number: BR-ROCHE-514893

PATIENT
  Age: 21 Year
  Sex: Female

DRUGS (1)
  1. ISOTRETINOIN [Suspect]
     Indication: ACNE
     Dosage: DOSE AND FREQUENCY REPORTED AS ^UNKNOWN^.
     Route: 048
     Dates: start: 20070501

REACTIONS (1)
  - NEPHROLITHIASIS [None]
